FAERS Safety Report 4972718-3 (Version None)
Quarter: 2006Q1

REPORT INFORMATION
  Report Type: 
  Country: None (occurrence: None)
  Receive Date: 20060215
  Receipt Date: 20060110
  Transmission Date: 20060701
  Serious: No
  Sender: FDA-Public Use
  Company Number: US200601001347

PATIENT
  Age: 22 Year
  Sex: Male

DRUGS (1)
  1. CIALIS [Suspect]
     Dates: start: 20051120, end: 20051120

REACTIONS (3)
  - BACK PAIN [None]
  - HEADACHE [None]
  - NECK PAIN [None]
